FAERS Safety Report 7683449-3 (Version None)
Quarter: 2011Q3

REPORT INFORMATION
  Report Type: 
  Country: None (occurrence: None)
  Receive Date: 20110812
  Receipt Date: 20110812
  Transmission Date: 20111222
  Serious: Yes (Hospitalization)
  Sender: FDA-Public Use
  Company Number: None

PATIENT
  Sex: Male
  Weight: 59.7 kg

DRUGS (2)
  1. CARBOPLATIN [Suspect]
     Dosage: 760 MG
     Dates: end: 20110808
  2. TAXOL [Suspect]
     Dosage: 336 MG
     Dates: end: 20110808

REACTIONS (1)
  - PNEUMONIA [None]
